FAERS Safety Report 5588009-6 (Version None)
Quarter: 2008Q1

REPORT INFORMATION
  Report Type: 
  Country: None (occurrence: None)
  Receive Date: 20080111
  Receipt Date: 20080102
  Transmission Date: 20080703
  Serious: Yes (Other)
  Sender: FDA-Public Use
  Company Number: GB-PFIZER INC-2008000969

PATIENT

DRUGS (3)
  1. DOXAZOSIN [Suspect]
  2. RAMIPRIL [Suspect]
  3. BENDROFLUAZIDE [Suspect]

REACTIONS (1)
  - BLOOD PRESSURE INADEQUATELY CONTROLLED [None]
